FAERS Safety Report 12976021 (Version 7)
Quarter: 2018Q1

REPORT INFORMATION
  Report Type: Report from Study
  Country: None (occurrence: US)
  Receive Date: 20161126
  Receipt Date: 20180316
  Transmission Date: 20180508
  Serious: Yes (Hospitalization, Other)
  Sender: FDA-Public Use
  Company Number: US-ABBVIE-16K-163-1785456-00

PATIENT
  Age: 67 Year
  Sex: Female

DRUGS (5)
  1. HUMIRA [Suspect]
     Active Substance: ADALIMUMAB
     Indication: RHEUMATOID ARTHRITIS
     Route: 058
     Dates: end: 201703
  2. HUMIRA [Suspect]
     Active Substance: ADALIMUMAB
     Route: 058
     Dates: start: 201706, end: 201708
  3. HUMIRA [Suspect]
     Active Substance: ADALIMUMAB
     Route: 058
     Dates: start: 2017
  4. TRAMADOL. [Suspect]
     Active Substance: TRAMADOL
     Indication: PRODUCT USED FOR UNKNOWN INDICATION
     Route: 065
  5. HUMIRA [Suspect]
     Active Substance: ADALIMUMAB
     Route: 058
     Dates: start: 2017, end: 201705

REACTIONS (29)
  - Asthenia [Unknown]
  - Psoriasis [Not Recovered/Not Resolved]
  - Sciatica [Unknown]
  - Injection site haemorrhage [Unknown]
  - Blindness unilateral [Unknown]
  - Brain neoplasm [Unknown]
  - Fatigue [Unknown]
  - Osteoporosis [Unknown]
  - Memory impairment [Unknown]
  - Joint range of motion decreased [Unknown]
  - Muscle spasms [Unknown]
  - Rheumatoid arthritis [Unknown]
  - Blood calcium increased [Unknown]
  - Headache [Unknown]
  - Injection site bruising [Unknown]
  - Hypophagia [Unknown]
  - Thyroid function test abnormal [Unknown]
  - Parathyroid cyst [Unknown]
  - Cerebrovascular accident [Unknown]
  - Abdominal pain upper [Recovering/Resolving]
  - Dizziness [Unknown]
  - Dyspnoea [Unknown]
  - Vomiting [Unknown]
  - Parathyroid tumour [Unknown]
  - Adverse drug reaction [Unknown]
  - Vasculitis [Unknown]
  - Injection site pain [Unknown]
  - Gait inability [Unknown]
  - Somnolence [Unknown]

NARRATIVE: CASE EVENT DATE: 201308
